FAERS Safety Report 5875183-7 (Version None)
Quarter: 2008Q3

REPORT INFORMATION
  Report Type: 
  Country: None (occurrence: None)
  Receive Date: 20080909
  Receipt Date: 20071203
  Transmission Date: 20090109
  Serious: No
  Sender: FDA-Public Use
  Company Number: A0698200A

PATIENT
  Sex: Female

DRUGS (1)
  1. ALBENZA [Suspect]
     Indication: STRONGYLOIDIASIS
     Route: 048

REACTIONS (1)
  - DRUG INEFFECTIVE [None]
